FAERS Safety Report 20606836 (Version 6)
Quarter: 2023Q2

REPORT INFORMATION
  Report Type: Spontaneous
  Country: GB (occurrence: GB)
  Receive Date: 20220317
  Receipt Date: 20230622
  Transmission Date: 20230722
  Serious: Yes (Life-Threatening, Hospitalization, Disabling, Other)
  Sender: FDA-Public Use
  Company Number: None

PATIENT
  Age: 31 Year
  Sex: Female
  Weight: 63 kg

DRUGS (15)
  1. QUETIAPINE [Suspect]
     Active Substance: QUETIAPINE
     Indication: Product used for unknown indication
     Dosage: UNK
  2. QUETIAPINE FUMARATE [Interacting]
     Active Substance: QUETIAPINE FUMARATE
     Indication: Psychotic disorder
     Dosage: 300 MG
     Route: 048
     Dates: start: 20110224, end: 20110506
  3. PAROXETINE HYDROCHLORIDE [Interacting]
     Active Substance: PAROXETINE HYDROCHLORIDE
     Indication: Product used for unknown indication
     Dosage: (20 MG, THREE TIMES PER DAY)
     Route: 048
     Dates: start: 19990801, end: 201105
  4. TRAMADOL HYDROCHLORIDE [Interacting]
     Active Substance: TRAMADOL HYDROCHLORIDE
     Indication: Analgesic therapy
     Dosage: 4 CYCLICAL QD
     Route: 048
     Dates: start: 20080722
  5. AMITRIPTYLINE HYDROCHLORIDE [Interacting]
     Active Substance: AMITRIPTYLINE HYDROCHLORIDE
     Indication: Drug withdrawal syndrome
     Dosage: 25 MG, ONCE PER DAY (25 MG AT NIGHT)
     Route: 048
     Dates: start: 20110810
  6. CLONAZEPAM [Interacting]
     Active Substance: CLONAZEPAM
     Indication: Sedation
     Dosage: UNK, UNK (UNSURE)
     Route: 048
     Dates: start: 20110224, end: 20110410
  7. CODEINE PHOSPHATE [Interacting]
     Active Substance: CODEINE PHOSPHATE
     Indication: Analgesic therapy
     Dosage: 15-30 MG
     Route: 048
     Dates: start: 20110615, end: 20110723
  8. DIAZEPAM [Interacting]
     Active Substance: DIAZEPAM
     Indication: Depression
     Dosage: 5 MG, QID (5 MG QDS AND NOW ON 2-2-4 MG)
     Route: 048
     Dates: start: 20110725, end: 20110725
  9. DOMPERIDONE [Interacting]
     Active Substance: DOMPERIDONE
     Indication: Product used for unknown indication
     Dosage: UNK
     Route: 048
     Dates: start: 20110725
  10. LORAZEPAM [Interacting]
     Active Substance: LORAZEPAM
     Indication: Sedation
     Dosage: 1 MG, 4 TIMES PER DAY
     Route: 048
     Dates: start: 20110224, end: 20110410
  11. MIRTAZAPINE [Interacting]
     Active Substance: MIRTAZAPINE
     Indication: Depression
     Dosage: 30MG IN THE DAY AND 15MG AT NIGHT
     Route: 048
     Dates: start: 20110224, end: 20110506
  12. OMEPRAZOLE [Interacting]
     Active Substance: OMEPRAZOLE
     Indication: Dyspepsia
     Dosage: 20 MG, ONCE PER DAY
     Route: 048
  13. PAROXETINE [Interacting]
     Active Substance: PAROXETINE
     Indication: Depression
     Dosage: 20 MG, 3 TIMES PER DAY
     Route: 048
     Dates: start: 1997, end: 201105
  14. PHOSPHORUS [Interacting]
     Active Substance: PHOSPHORUS
     Indication: Product used for unknown indication
     Dosage: UNKNOWN
     Route: 048
     Dates: start: 20110224, end: 20110506
  15. PROCYCLIDINE HYDROCHLORIDE [Suspect]
     Active Substance: PROCYCLIDINE HYDROCHLORIDE
     Indication: Extrapyramidal disorder
     Dosage: 5 MG, ONCE PER DAY
     Route: 048
     Dates: start: 1995, end: 1996

REACTIONS (89)
  - Dyspnoea [Unknown]
  - Mania [Unknown]
  - Tremor [Not Recovered/Not Resolved]
  - Feeling jittery [Unknown]
  - Headache [Unknown]
  - Sleep disorder [Unknown]
  - Anxiety [Unknown]
  - Agitation [Unknown]
  - Urinary retention [Unknown]
  - Visual impairment [Unknown]
  - Blood sodium decreased [Unknown]
  - Asthenia [Unknown]
  - Disturbance in attention [Unknown]
  - Feeling of despair [Unknown]
  - Emotional disorder [Unknown]
  - Restlessness [Unknown]
  - Depression [Unknown]
  - Decreased appetite [Unknown]
  - Derealisation [Not Recovered/Not Resolved]
  - Vomiting [Unknown]
  - Hyperhidrosis [Unknown]
  - Delirium [Unknown]
  - H1N1 influenza [Unknown]
  - Pyrexia [Unknown]
  - Disorientation [Not Recovered/Not Resolved]
  - Muscle spasms [Not Recovered/Not Resolved]
  - Skin discolouration [Not Recovered/Not Resolved]
  - Arthralgia [Unknown]
  - Serotonin syndrome [Not Recovered/Not Resolved]
  - Paraesthesia [Unknown]
  - Menstrual disorder [Unknown]
  - Dissociation [Not Recovered/Not Resolved]
  - Hallucinations, mixed [Unknown]
  - Dyskinesia [Unknown]
  - Pruritus [Unknown]
  - Psychotic disorder [Recovered/Resolved]
  - Parosmia [Unknown]
  - Tachycardia [Unknown]
  - Diarrhoea [Unknown]
  - Incontinence [Not Recovered/Not Resolved]
  - Swelling face [Unknown]
  - Vision blurred [Unknown]
  - Hypoaesthesia [Not Recovered/Not Resolved]
  - Gastric pH decreased [Unknown]
  - Dizziness [Unknown]
  - Heart rate increased [Unknown]
  - Cyanosis [Unknown]
  - Sensory loss [Unknown]
  - Balance disorder [Unknown]
  - Drooling [Unknown]
  - Cogwheel rigidity [Unknown]
  - Tinnitus [Unknown]
  - Eye pain [Unknown]
  - Gait disturbance [Unknown]
  - Schizophrenia [Unknown]
  - Neuroleptic malignant syndrome [Unknown]
  - Mydriasis [Unknown]
  - Pallor [Unknown]
  - Fatigue [Not Recovered/Not Resolved]
  - Illness [Unknown]
  - Speech disorder [Unknown]
  - Mood swings [Unknown]
  - Paralysis [Unknown]
  - Swollen tongue [Unknown]
  - Feeling of body temperature change [Unknown]
  - Muscle rigidity [Unknown]
  - Contusion [Not Recovered/Not Resolved]
  - Nightmare [Unknown]
  - Dystonia [Unknown]
  - Musculoskeletal stiffness [Not Recovered/Not Resolved]
  - Hypoaesthesia oral [Unknown]
  - Seizure [Unknown]
  - Toxicity to various agents [Unknown]
  - Aphasia [Not Recovered/Not Resolved]
  - Drug withdrawal syndrome [Unknown]
  - Drug interaction [Unknown]
  - Premature labour [Unknown]
  - Suicidal ideation [Not Recovered/Not Resolved]
  - Muscle disorder [Unknown]
  - Exposure during pregnancy [Unknown]
  - Drug ineffective [Unknown]
  - Limb injury [Unknown]
  - Somnolence [Not Recovered/Not Resolved]
  - Off label use [Unknown]
  - Restless legs syndrome [Not Recovered/Not Resolved]
  - Therapeutic product ineffective [Unknown]
  - Depersonalisation/derealisation disorder [Not Recovered/Not Resolved]
  - Confusional state [Not Recovered/Not Resolved]
  - Maternal exposure during pregnancy [Unknown]

NARRATIVE: CASE EVENT DATE: 20030101
